FAERS Safety Report 9767206 (Version 1)
Quarter: 2013Q4

REPORT INFORMATION
  Report Type: Spontaneous
  Country: US (occurrence: US)
  Receive Date: 20131217
  Receipt Date: 20131217
  Transmission Date: 20140711
  Serious: No
  Sender: FDA-Public Use
  Company Number: US-GLAXOSMITHKLINE-A1043485A

PATIENT
  Age: 56 Year
  Sex: Male

DRUGS (5)
  1. VOTRIENT [Suspect]
     Indication: RENAL CANCER
     Dosage: 2TAB TWICE PER DAY
     Route: 048
     Dates: start: 20130922
  2. BENICAR [Concomitant]
  3. FISH OIL [Concomitant]
  4. METFORMIN [Concomitant]
  5. VITAMIN D [Concomitant]

REACTIONS (4)
  - Palmar-plantar erythrodysaesthesia syndrome [Not Recovered/Not Resolved]
  - Fatigue [Unknown]
  - Stomatitis [Unknown]
  - Dysgeusia [Unknown]
